FAERS Safety Report 24680739 (Version 2)
Quarter: 2024Q4

REPORT INFORMATION
  Report Type: Spontaneous
  Country: SK (occurrence: SK)
  Receive Date: 20241129
  Receipt Date: 20241202
  Transmission Date: 20250115
  Serious: Yes (Death, Other)
  Sender: NOVARTIS
  Company Number: SK-SANDOZ-SDZ2024SK098434

PATIENT
  Age: 58 Year

DRUGS (5)
  1. IMATINIB [Suspect]
     Active Substance: IMATINIB
     Indication: Chronic myeloid leukaemia
     Dosage: UNK
     Route: 065
     Dates: start: 2006, end: 2014
  2. RUXOLITINIB [Concomitant]
     Active Substance: RUXOLITINIB
     Indication: Primary myelofibrosis
     Dosage: UNK
     Route: 065
  3. RUXOLITINIB [Concomitant]
     Active Substance: RUXOLITINIB
     Indication: Splenomegaly
     Dosage: UNK
     Route: 065
  4. RUXOLITINIB [Concomitant]
     Active Substance: RUXOLITINIB
     Indication: Janus kinase 2 mutation
  5. AVELUMAB [Concomitant]
     Active Substance: AVELUMAB
     Indication: Skin cancer
     Dosage: UNK
     Route: 065

REACTIONS (3)
  - Thrombocytopenia [Fatal]
  - Anaemia [Fatal]
  - Ascites [Fatal]
